FAERS Safety Report 9791424 (Version 2)
Quarter: 2014Q1

REPORT INFORMATION
  Report Type: Spontaneous
  Country: US (occurrence: US)
  Receive Date: 20140101
  Receipt Date: 20140130
  Transmission Date: 20141002
  Serious: Yes (Life-Threatening, Hospitalization, Other)
  Sender: FDA-Public Use
  Company Number: PHEH2013US026331

PATIENT
  Age: 48 Year
  Sex: Female
  Weight: 91.16 kg

DRUGS (32)
  1. GILENYA [Suspect]
     Indication: MULTIPLE SCLEROSIS RELAPSE
     Dosage: 0.5 MG, QD
     Route: 048
     Dates: start: 20110105, end: 20131218
  2. CYCLOBENZAPRINE [Concomitant]
     Dosage: 10 MG, BID
     Route: 048
     Dates: start: 20130701
  3. CYMBALTA [Concomitant]
     Dosage: 30 MG, DAILY
     Route: 048
     Dates: start: 20130805
  4. DIAZEPAM [Concomitant]
     Dosage: 5 MG, BID
     Route: 048
     Dates: start: 20130701
  5. DOXYCYCLINE MONOHYDRATE [Concomitant]
     Dosage: 100 MG, UNK
     Route: 048
     Dates: start: 20131029
  6. MELOXICAM [Concomitant]
     Dosage: 15 MG,DAILY
     Route: 048
     Dates: start: 20131105
  7. TRAMADOL HCL [Concomitant]
     Dosage: 50 MG, 1-2 3 TIMES PER DAY
     Route: 048
     Dates: start: 20121116
  8. VITAMIN B12 [Concomitant]
  9. VITAMIN D [Concomitant]
     Dosage: 50000 U, 1 WEEKLY
  10. PSEUDOEPHEDRINE HYDROCHLORIDE [Concomitant]
     Route: 048
  11. VITAMIN B-COMPLEX [Concomitant]
     Dosage: 1000 UG, EVERYDAY
     Route: 048
     Dates: start: 20131218
  12. DIPHENHYDRAMINE HCL [Concomitant]
     Route: 048
  13. CHLORPHENIRAMINE MALEATE [Concomitant]
     Dosage: 4 MG, PRN, EVERYDAY
  14. PHENYLEPHRINE HCL [Concomitant]
     Dosage: 10 MG, UNK
     Route: 048
  15. POLYETHYLENE GLYCOL [Concomitant]
     Dosage: 3350 U, UNK
     Route: 048
  16. VITAMIN D3 [Concomitant]
     Dosage: 1000 U, EVERY DAY
     Route: 048
  17. FLUTICASONE [Concomitant]
     Dosage: 50 UG, UNK
  18. XOPENEX [Concomitant]
     Dosage: 1.25 UG/ML, EVERY 8 HOURS
     Route: 055
     Dates: start: 20131218
  19. SODIUM CHLORIDE [Concomitant]
     Dosage: 10 ML, EVERY 8 HOURS
     Route: 042
     Dates: start: 20131218
  20. FLEXERIL [Concomitant]
     Dosage: 10 MG, EVERY 12 HOURS
     Route: 048
     Dates: start: 20131219
  21. MIRALAX [Concomitant]
     Dosage: 17 G, EVERY MORNING
     Route: 048
     Dates: start: 20131219
  22. BENADRYL ITCH [Concomitant]
     Indication: PRURITUS
     Route: 042
     Dates: start: 20131218
  23. ZOFRAN [Concomitant]
     Indication: NAUSEA
     Route: 042
     Dates: start: 20131218
  24. AFRIN [Concomitant]
     Dates: start: 20131223
  25. XANAX [Concomitant]
     Dosage: 0.25 MG, EVERY 8 HOURS
     Route: 048
     Dates: start: 20131218
  26. TRAMADOL [Concomitant]
     Dosage: 50 MG, TID
     Route: 048
     Dates: start: 20121116
  27. METHYLPREDNISOLONE [Concomitant]
     Dosage: 4 MG, UNK
     Route: 048
     Dates: start: 20130701
  28. VIVELLE-DOT [Concomitant]
     Dosage: UNK, PRN
  29. LORTAB [Concomitant]
     Route: 048
     Dates: start: 20131218
  30. POTASSIUM CHLORIDE [Concomitant]
     Route: 048
     Dates: start: 20131218
  31. PHENERGAN [Concomitant]
  32. ASPIRIN [Concomitant]
     Dosage: 325 MG, UNK
     Route: 048
     Dates: start: 20121016

REACTIONS (12)
  - Blastomycosis [Not Recovered/Not Resolved]
  - Skin lesion [Not Recovered/Not Resolved]
  - Skin ulcer [Unknown]
  - Eschar [Unknown]
  - Pain [Unknown]
  - Pneumonia [Recovering/Resolving]
  - Dyspnoea [Unknown]
  - Cough [Unknown]
  - Pseudomonas infection [Unknown]
  - Staphylococcal infection [Unknown]
  - Arthropod bite [Unknown]
  - Lymphopenia [Unknown]
